FAERS Safety Report 19642540 (Version 2)
Quarter: 2021Q3

REPORT INFORMATION
  Report Type: Spontaneous
  Country: US (occurrence: US)
  Receive Date: 20210730
  Receipt Date: 20210928
  Transmission Date: 20211014
  Serious: No
  Sender: FDA-Public Use
  Company Number: US-BAUSCH-BL-2021-023150

PATIENT
  Age: 69 Year
  Sex: Female

DRUGS (2)
  1. JUBLIA [Suspect]
     Active Substance: EFINACONAZOLE
     Indication: ONYCHOMYCOSIS
     Route: 061
     Dates: start: 202106, end: 20210701
  2. JUBLIA [Suspect]
     Active Substance: EFINACONAZOLE
     Indication: PRODUCT USE IN UNAPPROVED INDICATION

REACTIONS (6)
  - Application site swelling [Not Recovered/Not Resolved]
  - Product use in unapproved indication [Unknown]
  - Application site pain [Not Recovered/Not Resolved]
  - Application site papules [Not Recovered/Not Resolved]
  - Infection [Not Recovered/Not Resolved]
  - Application site erythema [Not Recovered/Not Resolved]

NARRATIVE: CASE EVENT DATE: 2021
